FAERS Safety Report 7622399-5 (Version None)
Quarter: 2011Q3

REPORT INFORMATION
  Report Type: 
  Country: None (occurrence: None)
  Receive Date: 20110718
  Receipt Date: 20110718
  Transmission Date: 20111222
  Serious: No
  Sender: FDA-Public Use
  Company Number: None

PATIENT
  Sex: Female
  Weight: 65.7716 kg

DRUGS (1)
  1. ZOLPIDEM [Suspect]
     Indication: INSOMNIA
     Dosage: 30
     Dates: start: 20080201

REACTIONS (3)
  - TREMOR [None]
  - HEADACHE [None]
  - PRODUCT SUBSTITUTION ISSUE [None]
